FAERS Safety Report 5830748-3 (Version None)
Quarter: 2008Q3

REPORT INFORMATION
  Report Type: 
  Country: None (occurrence: None)
  Receive Date: 20080801
  Receipt Date: 20071106
  Transmission Date: 20090109
  Serious: No
  Sender: FDA-Public Use
  Company Number: US-BRISTOL-MYERS SQUIBB COMPANY-13970736

PATIENT
  Age: 65 Year
  Sex: Male
  Weight: 74 kg

DRUGS (5)
  1. COUMADIN [Suspect]
     Indication: ATRIAL FIBRILLATION
     Dosage: 1 DOSAGE FORM =10 MG 1 TAB ON 6 DAYS A WEEK AND 2.5 MG 1 TAB ON 1DAY A WEEK
     Route: 048
  2. TOPROL-XL [Concomitant]
  3. ASPIRIN [Concomitant]
  4. ZEGERID [Concomitant]
  5. LIPITOR [Concomitant]

REACTIONS (2)
  - HAEMOGLOBIN DECREASED [None]
  - MELAENA [None]
